FAERS Safety Report 6554492-2 (Version None)
Quarter: 2010Q1

REPORT INFORMATION
  Report Type: 
  Country: None (occurrence: None)
  Receive Date: 20100127
  Receipt Date: 20100118
  Transmission Date: 20100710
  Serious: Yes (Other)
  Sender: FDA-Public Use
  Company Number: US-GILEAD-2010-0026543

PATIENT
  Age: 38 Year
  Sex: Female

DRUGS (2)
  1. VIREAD [Suspect]
     Indication: HIV INFECTION
     Route: 048
     Dates: start: 20081001
  2. EPZICOM [Concomitant]
     Indication: HIV INFECTION
     Dates: start: 20081001

REACTIONS (1)
  - ABORTION SPONTANEOUS [None]
